FAERS Safety Report 4286634-6 (Version None)
Quarter: 2004Q1

REPORT INFORMATION
  Report Type: 
  Country: None (occurrence: None)
  Receive Date: 20040206
  Receipt Date: 20040122
  Transmission Date: 20041129
  Serious: Yes (Other)
  Sender: FDA-Public Use
  Company Number: PHBS2004BR01203

PATIENT
  Sex: Female

DRUGS (3)
  1. VISKALDIX [Suspect]
     Indication: HYPERTENSION
     Dosage: 1 TABLET/DAY
     Route: 048
     Dates: start: 19910101
  2. RANITIDINE [Concomitant]
     Indication: GASTRITIS
     Dosage: UNK, PRN
  3. MYLANTA [Concomitant]
     Indication: GASTRITIS
     Dosage: UNK, PRN

REACTIONS (7)
  - ALANINE AMINOTRANSFERASE INCREASED [None]
  - ASPARTATE AMINOTRANSFERASE INCREASED [None]
  - DERMAL CYST [None]
  - FLATULENCE [None]
  - FREQUENT BOWEL MOVEMENTS [None]
  - GASTROOESOPHAGEAL REFLUX DISEASE [None]
  - HEPATITIS A [None]
